FAERS Safety Report 15188779 (Version 1)
Quarter: 2018Q3

REPORT INFORMATION
  Report Type: Spontaneous
  Country: US (occurrence: US)
  Receive Date: 20180724
  Receipt Date: 20180724
  Transmission Date: 20181010
  Serious: No
  Sender: FDA-Public Use
  Company Number: US-BAYER-2018-134269

PATIENT
  Sex: Female

DRUGS (1)
  1. CLARITIN?D NOS [Suspect]
     Active Substance: LORATADINE\PSEUDOEPHEDRINE SULFATE
     Dosage: 4 DF, UNK
     Route: 065

REACTIONS (2)
  - Dyspnoea [Unknown]
  - Product use issue [None]
